FAERS Safety Report 4600365-1 (Version None)
Quarter: 2005Q1

REPORT INFORMATION
  Report Type: 
  Country: None (occurrence: None)
  Receive Date: 20050304
  Receipt Date: 20050221
  Transmission Date: 20050727
  Serious: Yes (Other)
  Sender: FDA-Public Use
  Company Number: 2005034061

PATIENT
  Age: 91 Year
  Sex: Female
  Weight: 72.5755 kg

DRUGS (4)
  1. DETROL LA [Suspect]
     Indication: INCONTINENCE
     Dosage: 2 MG (2 MG, 1 IN 1 D), ORAL
     Route: 048
     Dates: start: 20030101
  2. ALL OTHER THERAPEUTIC PRODUCTS [Concomitant]
  3. POTASSIUM CHLORIDE [Concomitant]
  4. VITAMINS [Concomitant]

REACTIONS (4)
  - MEDICATION ERROR [None]
  - MEMORY IMPAIRMENT [None]
  - TREATMENT NONCOMPLIANCE [None]
  - VAGINAL CANCER [None]
